FAERS Safety Report 16644435 (Version 1)
Quarter: 2019Q3

REPORT INFORMATION
  Report Type: Spontaneous
  Country: PT (occurrence: PT)
  Receive Date: 20190729
  Receipt Date: 20190729
  Transmission Date: 20191004
  Serious: Yes (Other)
  Sender: FDA-Public Use
  Company Number: PT-MYLANLABS-2019M1069951

PATIENT
  Age: 14 Year
  Sex: Female
  Weight: 60.5 kg

DRUGS (1)
  1. METILFENIDATO MYLAN [Suspect]
     Active Substance: METHYLPHENIDATE HYDROCHLORIDE
     Indication: PRODUCT USED FOR UNKNOWN INDICATION
     Dosage: 1CP AO PEQ-ALMOCO
     Route: 048
     Dates: start: 20190205, end: 20190207

REACTIONS (2)
  - Product substitution issue [Recovered/Resolved with Sequelae]
  - Nausea [Recovered/Resolved with Sequelae]

NARRATIVE: CASE EVENT DATE: 20190205
